FAERS Safety Report 24016573 (Version 3)
Quarter: 2024Q3

REPORT INFORMATION
  Report Type: Report from Study
  Country: JP (occurrence: JP)
  Receive Date: 20240626
  Receipt Date: 20240905
  Transmission Date: 20241017
  Serious: Yes (Hospitalization)
  Sender: BIOMARIN
  Company Number: JP-BIOMARINAP-JP-2024-158802

PATIENT

DRUGS (1)
  1. VOXZOGO [Suspect]
     Active Substance: VOSORITIDE
     Indication: Osteochondrodysplasia
     Dosage: 0.23, UNK, QD
     Route: 058
     Dates: start: 20221020

REACTIONS (1)
  - Foramen magnum stenosis [Recovered/Resolved]

NARRATIVE: CASE EVENT DATE: 20240202
